APPROVED DRUG PRODUCT: SOMOPHYLLIN
Active Ingredient: AMINOPHYLLINE
Strength: 105MG/5ML
Dosage Form/Route: SOLUTION;ORAL
Application: A086466 | Product #001
Applicant: FISONS CORP
Approved: Approved Prior to Jan 1, 1982 | RLD: No | RS: No | Type: DISCN